FAERS Safety Report 6904911-4 (Version None)
Quarter: 2010Q3

REPORT INFORMATION
  Report Type: 
  Country: None (occurrence: None)
  Receive Date: 20100804
  Receipt Date: 20090803
  Transmission Date: 20110219
  Serious: No
  Sender: FDA-Public Use
  Company Number: US-PFIZER INC-2009202196

PATIENT
  Sex: Male

DRUGS (1)
  1. LYRICA [Suspect]
     Indication: POST HERPETIC NEURALGIA
     Dosage: 100 MG, 3X/DAY

REACTIONS (5)
  - ALTERED VISUAL DEPTH PERCEPTION [None]
  - CHOKING [None]
  - COUGH [None]
  - DYSPHAGIA [None]
  - PAIN [None]
